FAERS Safety Report 10159915 (Version 1)
Quarter: 2014Q2

REPORT INFORMATION
  Report Type: Spontaneous
  Country: US (occurrence: US)
  Receive Date: 20140508
  Receipt Date: 20140508
  Transmission Date: 20141212
  Serious: No
  Sender: FDA-Public Use
  Company Number: US-TEVA-480195USA

PATIENT
  Sex: 0

DRUGS (1)
  1. COPAXONE [Suspect]

REACTIONS (2)
  - Skin disorder [Unknown]
  - Injection site atrophy [Unknown]
